FAERS Safety Report 10649033 (Version 2)
Quarter: 2014Q4

REPORT INFORMATION
  Report Type: Spontaneous
  Country: US (occurrence: US)
  Receive Date: 20141212
  Receipt Date: 20141216
  Transmission Date: 20150529
  Serious: Yes (Hospitalization)
  Sender: FDA-Public Use
  Company Number: US-PFIZER INC-2014338297

PATIENT
  Age: 73 Year
  Sex: Male
  Weight: 77 kg

DRUGS (5)
  1. GRALISE [Suspect]
     Active Substance: GABAPENTIN
     Indication: DIABETIC NEUROPATHY
     Dosage: UNK
     Dates: start: 20141011, end: 20141020
  2. OXYCONTIN [Concomitant]
     Active Substance: OXYCODONE HYDROCHLORIDE
     Dosage: UNK
     Dates: end: 2014
  3. TRAMADOL [Concomitant]
     Active Substance: TRAMADOL
     Dosage: 25 MG, AS NEEDED (EVERY 6 HOURS AS NEEDED)
  4. GABAPENTIN. [Suspect]
     Active Substance: GABAPENTIN
     Indication: DIABETIC NEUROPATHY
     Dosage: 600 MG, 3X/DAY
     Route: 048
     Dates: start: 20141021, end: 20141202
  5. FENTANYL TRANSDERMAL SYSTEM [Concomitant]
     Active Substance: FENTANYL
     Dosage: UNK
     Dates: end: 2014

REACTIONS (12)
  - Fall [Unknown]
  - Muscular weakness [Unknown]
  - Somnolence [Unknown]
  - Back pain [Unknown]
  - Pain [Unknown]
  - Tremor [Unknown]
  - Disorientation [Unknown]
  - Fatigue [Unknown]
  - Product use issue [Unknown]
  - Condition aggravated [Unknown]
  - Hallucination [Unknown]
  - Myalgia [Unknown]

NARRATIVE: CASE EVENT DATE: 201410
